FAERS Safety Report 9005858 (Version 1)
Quarter: 2013Q1

REPORT INFORMATION
  Report Type: Report from Study
  Country: AR (occurrence: AR)
  Receive Date: 20130109
  Receipt Date: 20130109
  Transmission Date: 20140127
  Serious: Yes (Other)
  Sender: FDA-Public Use
  Company Number: AR-US-EMD SERONO, INC.-7186066

PATIENT
  Sex: Female

DRUGS (1)
  1. REBIF [Suspect]
     Indication: MULTIPLE SCLEROSIS
     Dates: start: 20090727

REACTIONS (4)
  - Hypothermia [Not Recovered/Not Resolved]
  - Tremor [Not Recovered/Not Resolved]
  - Foaming at mouth [Not Recovered/Not Resolved]
  - Stress [Unknown]
